FAERS Safety Report 10169140 (Version 1)
Quarter: 2014Q2

REPORT INFORMATION
  Report Type: Spontaneous
  Country: US (occurrence: US)
  Receive Date: 20140513
  Receipt Date: 20140513
  Transmission Date: 20141212
  Serious: No
  Sender: FDA-Public Use
  Company Number: US-TARO-2013P1021134

PATIENT
  Age: 4 Year
  Sex: Male

DRUGS (4)
  1. CETIRIZINE HCL CHILDREN ORAL SOLUTION ALLERGY 1MG/ML (SUGARFREE GRAPE) [Suspect]
     Indication: COUGH
     Route: 048
     Dates: start: 20131113, end: 20131113
  2. CETIRIZINE HCL CHILDREN ORAL SOLUTION ALLERGY 1MG/ML (SUGARFREE GRAPE) [Suspect]
     Indication: RHINORRHOEA
     Route: 048
     Dates: start: 20131113, end: 20131113
  3. CETIRIZINE HCL CHILDREN ORAL SOLUTION ALLERGY 1MG/ML (SUGARFREE GRAPE) [Suspect]
     Indication: BRONCHITIS
     Route: 048
     Dates: start: 20131113, end: 20131113
  4. CETIRIZINE HCL CHILDREN ORAL SOLUTION ALLERGY 1MG/ML (SUGARFREE GRAPE) [Suspect]
     Indication: EAR INFECTION
     Route: 048
     Dates: start: 20131113, end: 20131113

REACTIONS (2)
  - Vomiting [Unknown]
  - Off label use [Unknown]
